FAERS Safety Report 6596425-9 (Version None)
Quarter: 2010Q1

REPORT INFORMATION
  Report Type: 
  Country: None (occurrence: None)
  Receive Date: 20100223
  Receipt Date: 20100204
  Transmission Date: 20100710
  Serious: Yes (Hospitalization)
  Sender: FDA-Public Use
  Company Number: JP-JNJFOC-20100203934

PATIENT
  Age: 22 Year
  Sex: Male

DRUGS (9)
  1. ITRIZOLE [Suspect]
     Indication: FEBRILE NEUTROPENIA
     Route: 048
  2. VORICONAZOLE [Suspect]
     Indication: BRONCHOPULMONARY ASPERGILLOSIS
     Dosage: 160 MG/BODY TO 400 MG/BODY
     Route: 065
  3. VORICONAZOLE [Suspect]
     Route: 065
  4. CEFEPIME HYDROCHLORIDE [Concomitant]
     Indication: FEBRILE NEUTROPENIA
     Route: 065
  5. TOSUFLOXACIN TOSILATE [Concomitant]
     Indication: PROPHYLAXIS
     Route: 065
  6. MICAFUNGIN SODIUM [Concomitant]
     Indication: PROPHYLAXIS
     Route: 065
  7. VANCOMYCIN [Concomitant]
     Indication: PNEUMONIA BACTERIAL
     Route: 065
  8. MEROPENEM TRIHYDRATE [Concomitant]
     Indication: PNEUMONIA BACTERIAL
     Route: 065
  9. CYTARABINE [Concomitant]
     Indication: ACUTE MYELOID LEUKAEMIA
     Route: 065

REACTIONS (1)
  - RESPIRATORY MONILIASIS [None]
